FAERS Safety Report 7012152-8 (Version None)
Quarter: 2010Q3

REPORT INFORMATION
  Report Type: 
  Country: None (occurrence: None)
  Receive Date: 20100924
  Receipt Date: 20100913
  Transmission Date: 20110219
  Serious: Yes (Hospitalization)
  Sender: FDA-Public Use
  Company Number: JP-JNJFOC-20100508954

PATIENT
  Sex: Male
  Weight: 85 kg

DRUGS (11)
  1. REMICADE [Suspect]
     Indication: RHEUMATOID ARTHRITIS
     Dosage: DOSE 10
     Route: 042
  2. REMICADE [Suspect]
     Dosage: 4TH DOSE
     Route: 042
  3. REMICADE [Suspect]
     Dosage: DOSES 1 - 9
     Route: 042
  4. REMICADE [Suspect]
     Dosage: 8TH DOSE
     Route: 042
  5. REMICADE [Suspect]
     Dosage: 9TH DOSE
     Route: 042
  6. REMICADE [Suspect]
     Dosage: 5TH, 6TH AND 7TH DOSES ON UNSPECFIED DATES
     Route: 042
  7. REMICADE [Suspect]
     Dosage: DOSES 2 AND 3 ON UNSPECIFIED DATES
     Route: 042
  8. METHOTREXATE [Concomitant]
     Indication: RHEUMATOID ARTHRITIS
     Route: 048
  9. PREDONINE [Concomitant]
     Indication: RHEUMATOID ARTHRITIS
     Route: 048
  10. GASTER D [Concomitant]
     Indication: GASTRITIS PROPHYLAXIS
     Route: 048
  11. FOLIAMIN [Concomitant]
     Indication: PROPHYLAXIS
     Route: 048

REACTIONS (2)
  - PULMONARY TUBERCULOSIS [None]
  - TUBERCULOUS PLEURISY [None]
